FAERS Safety Report 7419125-1 (Version None)
Quarter: 2011Q2

REPORT INFORMATION
  Report Type: 
  Country: None (occurrence: None)
  Receive Date: 20110415
  Receipt Date: 20110321
  Transmission Date: 20111010
  Serious: No
  Sender: FDA-Public Use
  Company Number: US-B.I. PHARMACEUTICALS,INC./RIDGEFIELD-2011-BP-08815BP

PATIENT
  Age: 69 Year
  Sex: Male

DRUGS (8)
  1. CRESTOR [Concomitant]
  2. DIOVAN [Concomitant]
  3. PRADAXA [Suspect]
     Indication: CEREBROVASCULAR ACCIDENT PROPHYLAXIS
  4. GLUCOTROL [Concomitant]
  5. CARDIZEM [Concomitant]
  6. PRADAXA [Suspect]
     Indication: ATRIAL FIBRILLATION
     Dosage: 300 MG
     Route: 048
     Dates: start: 20110318
  7. METFORMIN HCL [Concomitant]
  8. AMIODARONE HCL [Concomitant]

REACTIONS (3)
  - DIZZINESS [None]
  - MUSCULAR WEAKNESS [None]
  - DYSPEPSIA [None]
